FAERS Safety Report 17890472 (Version 1)
Quarter: 2020Q2

REPORT INFORMATION
  Report Type: Spontaneous
  Country: US (occurrence: US)
  Receive Date: 20200612
  Receipt Date: 20200612
  Transmission Date: 20200714
  Serious: No
  Sender: FDA-Public Use
  Company Number: US-PERRIGO-19US014216

PATIENT
  Age: 41 Year
  Sex: Female
  Weight: 68.03 kg

DRUGS (6)
  1. AZELASTINE HYDROCHLORIDE. [Suspect]
     Active Substance: AZELASTINE HYDROCHLORIDE
     Dosage: 1 SPRAY EACH NOSTRIL, ONCE
     Route: 045
     Dates: start: 20191117, end: 20191117
  2. ZYRTEC [Concomitant]
     Active Substance: CETIRIZINE HYDROCHLORIDE
     Indication: PERENNIAL ALLERGY
     Dosage: UNK
     Route: 065
  3. AZELASTINE HYDROCHLORIDE. [Suspect]
     Active Substance: AZELASTINE HYDROCHLORIDE
     Indication: PERENNIAL ALLERGY
     Dosage: 2 SPRAY EACH NOSTRIL,BID
     Route: 045
     Dates: start: 20191115, end: 20191115
  4. PREDNISONE. [Concomitant]
     Active Substance: PREDNISONE
     Indication: PERENNIAL ALLERGY
     Dosage: UNK
     Route: 065
     Dates: start: 20191115
  5. AZELASTINE HYDROCHLORIDE. [Suspect]
     Active Substance: AZELASTINE HYDROCHLORIDE
     Dosage: 1 SPRAY EACH NOSTRIL, TWICE
     Route: 045
     Dates: start: 20191116, end: 20191116
  6. FLONASE [Concomitant]
     Active Substance: FLUTICASONE PROPIONATE
     Indication: PERENNIAL ALLERGY
     Dosage: UNK
     Route: 065

REACTIONS (4)
  - Anosmia [Recovering/Resolving]
  - Ageusia [Recovering/Resolving]
  - Underdose [Recovered/Resolved]
  - Inappropriate schedule of product administration [Recovered/Resolved]

NARRATIVE: CASE EVENT DATE: 20191116
